FAERS Safety Report 5548335-3 (Version None)
Quarter: 2007Q4

REPORT INFORMATION
  Report Type: 
  Country: None (occurrence: None)
  Receive Date: 20071206
  Receipt Date: 20071122
  Transmission Date: 20080405
  Serious: Yes (Hospitalization)
  Sender: FDA-Public Use
  Company Number: 2007BI025313

PATIENT
  Age: 42 Year
  Sex: Female
  Weight: 62 kg

DRUGS (3)
  1. AVONEX [Suspect]
     Indication: MULTIPLE SCLEROSIS
     Dosage: QW; IM
     Route: 030
     Dates: start: 20070601
  2. LEVOTHYROXINE SODIUM [Concomitant]
  3. GABAPENTIN [Concomitant]

REACTIONS (3)
  - HEADACHE [None]
  - LUNG NEOPLASM [None]
  - PAIN [None]
